FAERS Safety Report 21691596 (Version 1)
Quarter: 2022Q4

REPORT INFORMATION
  Report Type: Report from Study
  Country: US (occurrence: US)
  Receive Date: 20221207
  Receipt Date: 20221207
  Transmission Date: 20230112
  Serious: No
  Sender: FDA-Public Use
  Company Number: US-ABBVIE-4191640

PATIENT
  Age: 65 Year
  Sex: Female

DRUGS (1)
  1. HUMIRA [Suspect]
     Active Substance: ADALIMUMAB
     Indication: Rheumatoid arthritis
     Route: 058

REACTIONS (5)
  - SARS-CoV-2 test positive [Recovered/Resolved]
  - Cough [Unknown]
  - Pyrexia [Unknown]
  - Throat irritation [Unknown]
  - Feeling jittery [Unknown]

NARRATIVE: CASE EVENT DATE: 20221001
